FAERS Safety Report 22155081 (Version 4)
Quarter: 2023Q2

REPORT INFORMATION
  Report Type: Report from Study
  Country: CA (occurrence: CA)
  Receive Date: 20230330
  Receipt Date: 20230526
  Transmission Date: 20230722
  Serious: Yes (Hospitalization, Other)
  Sender: FDA-Public Use
  Company Number: CA-GLAXOSMITHKLINE-CA2023AMR045942

PATIENT

DRUGS (2)
  1. MEPOLIZUMAB [Suspect]
     Active Substance: MEPOLIZUMAB
     Indication: Asthma
     Dosage: 100 MG, Q4W
     Route: 058
  2. MEPOLIZUMAB [Suspect]
     Active Substance: MEPOLIZUMAB
     Indication: Asthma
     Dosage: 100 MG, Q4W
     Route: 058

REACTIONS (5)
  - Cystic fibrosis [Not Recovered/Not Resolved]
  - Embolism venous [Unknown]
  - Contusion [Not Recovered/Not Resolved]
  - Hospitalisation [Unknown]
  - Respiration abnormal [Recovering/Resolving]

NARRATIVE: CASE EVENT DATE: 20230320
